FAERS Safety Report 20417031 (Version 1)
Quarter: 2022Q1

REPORT INFORMATION
  Report Type: Spontaneous
  Country: US (occurrence: US)
  Receive Date: 20220202
  Receipt Date: 20220202
  Transmission Date: 20220424
  Serious: No
  Sender: FDA-Public Use
  Company Number: US-PFIZER INC-202101529127

PATIENT
  Age: 59 Year
  Sex: Female

DRUGS (1)
  1. XELJANZ [Suspect]
     Active Substance: TOFACITINIB CITRATE
     Dosage: 5 MG, 2X/DAY
     Route: 048
     Dates: start: 2016

REACTIONS (4)
  - Product dose omission in error [Unknown]
  - COVID-19 [Not Recovered/Not Resolved]
  - Musculoskeletal stiffness [Unknown]
  - Disease recurrence [Unknown]

NARRATIVE: CASE EVENT DATE: 20211104
